FAERS Safety Report 4700941-1 (Version None)
Quarter: 2005Q2

REPORT INFORMATION
  Report Type: 
  Country: None (occurrence: None)
  Receive Date: 20050113
  Receipt Date: 20050113
  Transmission Date: 20051028
  Serious: Yes (Other)
  Sender: FDA-Public Use
  Company Number: None

PATIENT
  Age: 26 Year
  Sex: Female
  Weight: 99.3377 kg

DRUGS (1)
  1. MS CONTIN [Suspect]
     Dosage: 100MG 5 TABS EVERY 12 HOURS ; 60MG 2 TABS EVERY 12 HOURS

REACTIONS (2)
  - PAIN [None]
  - PHARMACEUTICAL PRODUCT COMPLAINT [None]
